FAERS Safety Report 4882419-8 (Version None)
Quarter: 2006Q1

REPORT INFORMATION
  Report Type: 
  Country: None (occurrence: None)
  Receive Date: 20060117
  Receipt Date: 20060106
  Transmission Date: 20060701
  Serious: Yes (Hospitalization, Other)
  Sender: FDA-Public Use
  Company Number: CN-GILEAD-2006-0009088

PATIENT
  Age: 65 Year
  Sex: Male

DRUGS (1)
  1. HEPSERA [Suspect]
     Indication: HEPATITIS B
     Route: 048
     Dates: start: 20051101

REACTIONS (3)
  - ANAEMIA [None]
  - ANGINA UNSTABLE [None]
  - CORONARY ARTERY DISEASE [None]
